FAERS Safety Report 25363973 (Version 1)
Quarter: 2025Q2

REPORT INFORMATION
  Report Type: Spontaneous
  Country: US (occurrence: None)
  Receive Date: 20250527
  Receipt Date: 20250527
  Transmission Date: 20250716
  Serious: Yes (Other)
  Sender: INCYTE
  Company Number: US-INCYTE CORPORATION-2025IN005684

PATIENT
  Age: 1 Year

DRUGS (2)
  1. JAKAFI [Suspect]
     Active Substance: RUXOLITINIB
     Indication: Gastrointestinal inflammation
     Dosage: 5 MILLIGRAM, BID
  2. JAKAFI [Suspect]
     Active Substance: RUXOLITINIB
     Indication: Colitis

REACTIONS (4)
  - Colitis [Unknown]
  - Gastrointestinal inflammation [Unknown]
  - Condition aggravated [Unknown]
  - Off label use [Unknown]
